FAERS Safety Report 24705308 (Version 1)
Quarter: 2024Q4

REPORT INFORMATION
  Report Type: Spontaneous
  Country: US (occurrence: US)
  Receive Date: 20241206
  Receipt Date: 20241206
  Transmission Date: 20250115
  Serious: No
  Sender: ALVOGEN
  Company Number: US-ALVOGEN-2024094920

PATIENT
  Age: 46 Year
  Sex: Female

DRUGS (1)
  1. LEVOTHYROXINE [Suspect]
     Active Substance: LEVOTHYROXINE
     Indication: Product used for unknown indication
     Dosage: STRENGTH:50MCG?FOR 7 DAYS
     Dates: start: 2024

REACTIONS (7)
  - Fluid retention [Unknown]
  - Lymphadenopathy [Unknown]
  - Constipation [Unknown]
  - Swelling face [Unknown]
  - Swelling [Unknown]
  - Generalised oedema [Unknown]
  - Weight increased [Unknown]

NARRATIVE: CASE EVENT DATE: 20240101
